FAERS Safety Report 8442585-4 (Version None)
Quarter: 2012Q2

REPORT INFORMATION
  Report Type: 
  Country: None (occurrence: None)
  Receive Date: 20120615
  Receipt Date: 20120605
  Transmission Date: 20120825
  Serious: Yes (Life-Threatening, Other)
  Sender: FDA-Public Use
  Company Number: US-BRISTOL-MYERS SQUIBB COMPANY-16056327

PATIENT
  Age: 6 Week
  Sex: Female

DRUGS (1)
  1. POTASSIUM CHLORIDE [Suspect]

REACTIONS (7)
  - BLOOD POTASSIUM INCREASED [None]
  - OVERDOSE [None]
  - MEDICATION ERROR [None]
  - CARDIAC ARREST [None]
  - VENTRICULAR ARRHYTHMIA [None]
  - DEAFNESS [None]
  - VENOUS THROMBOSIS [None]
